FAERS Safety Report 9752169 (Version 1)
Quarter: 2013Q4

REPORT INFORMATION
  Report Type: Spontaneous
  Country: KR (occurrence: None)
  Receive Date: 20131211
  Receipt Date: 20131211
  Transmission Date: 20140711
  Serious: Yes (Other)
  Sender: FDA-Public Use
  Company Number: FK201305258

PATIENT
  Age: 45 Year
  Sex: Male

DRUGS (3)
  1. OXALIPLATIN (MANUFACTURER UNKNOWN) (OXALIPLATIN) (OXALIPLATIN) [Suspect]
     Indication: COLON CANCER
     Dosage: CYCLICAL
  2. FLUOROURACIL (FLUOROURACIL) [Concomitant]
  3. FOLINIC ACID (FOLINIC ACID) [Concomitant]

REACTIONS (4)
  - Splenomegaly [None]
  - Hepatic fibrosis [None]
  - Portal hypertension [None]
  - Thrombocytopenia [None]
